FAERS Safety Report 24705116 (Version 1)
Quarter: 2024Q4

REPORT INFORMATION
  Report Type: Spontaneous
  Country: US (occurrence: US)
  Receive Date: 20241206
  Receipt Date: 20241206
  Transmission Date: 20250115
  Serious: Yes (Hospitalization)
  Sender: ROCHE
  Company Number: US-ROCHE-10000146929

PATIENT
  Age: 2 Year
  Sex: Male

DRUGS (2)
  1. HEMLIBRA [Suspect]
     Active Substance: EMICIZUMAB-KXWH
     Indication: Factor VIII deficiency
     Dosage: EVERY 28 DAYS
     Route: 058
  2. HEMLIBRA [Suspect]
     Active Substance: EMICIZUMAB-KXWH
     Dosage: EVERY 28 DAYS
     Route: 058
     Dates: start: 202308

REACTIONS (1)
  - Respiratory syncytial virus infection [Unknown]
